FAERS Safety Report 5673830-6 (Version None)
Quarter: 2008Q2

REPORT INFORMATION
  Report Type: 
  Country: None (occurrence: None)
  Receive Date: 20080226
  Receipt Date: 20070704
  Transmission Date: 20081010
  Serious: Yes (Other)
  Sender: FDA-Public Use
  Company Number: 505539

PATIENT
  Age: 40 Year
  Sex: Male

DRUGS (1)
  1. ACCUTANE [Suspect]
     Indication: DRUG USE FOR UNKNOWN INDICATION
     Dates: start: 19830615

REACTIONS (4)
  - CALCIFICATION OF MUSCLE [None]
  - CALCINOSIS [None]
  - MYALGIA [None]
  - OSTEOARTHRITIS [None]
